FAERS Safety Report 7150928-7 (Version None)
Quarter: 2010Q4

REPORT INFORMATION
  Report Type: 
  Country: None (occurrence: None)
  Receive Date: 20101210
  Receipt Date: 20101027
  Transmission Date: 20110411
  Serious: Yes (Hospitalization, Other)
  Sender: FDA-Public Use
  Company Number: US-ROCHE-746768

PATIENT
  Sex: Female

DRUGS (5)
  1. PEGINTERFERON ALFA-2A [Suspect]
     Indication: HEPATITIS C
     Route: 065
     Dates: start: 20101003, end: 20101107
  2. RIBASPHERE [Suspect]
     Indication: HEPATITIS C
     Dosage: DOSE TAKEN IN DIVIDED DOSES
     Route: 065
     Dates: start: 20101003, end: 20101107
  3. METFORMIN [Concomitant]
  4. INSULIN [Concomitant]
  5. JANUVIA [Concomitant]

REACTIONS (4)
  - ANAEMIA [None]
  - CHEST DISCOMFORT [None]
  - CORONARY ARTERY OCCLUSION [None]
  - DIZZINESS [None]
